FAERS Safety Report 7048741 (Version 3)
Quarter: 2017Q1

REPORT INFORMATION
  Report Type: Spontaneous
  Country: JP (occurrence: JP)
  Receive Date: 20090713
  Receipt Date: 20170214
  Transmission Date: 20170429
  Serious: Yes (Death, Other)
  Sender: FDA-Public Use
  Company Number: JP-BRISTOL-MYERS SQUIBB COMPANY-14697585

PATIENT
  Age: 31 Year
  Sex: Male

DRUGS (20)
  1. AMPHOTERICIN B. [Suspect]
     Active Substance: AMPHOTERICIN B
     Indication: LANGERHANS^ CELL HISTIOCYTOSIS
     Route: 065
  2. CYCLOPHOSPHAMIDE. [Suspect]
     Active Substance: CYCLOPHOSPHAMIDE
     Indication: LANGERHANS^ CELL HISTIOCYTOSIS
     Dosage: 6 COURSES
     Route: 065
  3. VEPESID [Suspect]
     Active Substance: ETOPOSIDE
     Indication: LANGERHANS^ CELL HISTIOCYTOSIS
     Dosage: 1 DOSAGEFORM = 25-200 MG
     Route: 065
  4. INTERFERON ALFA NOS [Suspect]
     Active Substance: INTERFERON ALFA-2A OR INTERFERON ALFA-2B
     Indication: LANGERHANS^ CELL HISTIOCYTOSIS
     Dosage: FORM = INJ  1 DOSAGEFORM = 3M-10M IU
     Route: 065
  5. SOBUZOXANE [Suspect]
     Active Substance: SOBUZOXANE
     Indication: LANGERHANS^ CELL HISTIOCYTOSIS
     Dosage: FORM = GRAN  1 DOSAGEFORM = 1200-2000 MG
     Route: 048
  6. ONCOVIN [Suspect]
     Active Substance: VINCRISTINE SULFATE
     Indication: LANGERHANS^ CELL HISTIOCYTOSIS
     Route: 065
  7. HYDREA [Suspect]
     Active Substance: HYDROXYUREA
     Indication: LANGERHANS^ CELL HISTIOCYTOSIS
     Dosage: 1 DOSAGEFORM = 500-3000 MG
     Route: 048
  8. PREDNISOLONE. [Suspect]
     Active Substance: PREDNISOLONE
     Indication: LANGERHANS^ CELL HISTIOCYTOSIS
     Dosage: 1 DOSAGEFORM = 30-40 MG/M2 (HIGH DOSES USED FOR THE LAST 6 MONTHS)
     Route: 065
  9. MITOXANTRONE [Suspect]
     Active Substance: MITOXANTRONE HYDROCHLORIDE
     Indication: LANGERHANS^ CELL HISTIOCYTOSIS
     Dosage: FORM = INJ  2 COURSES
     Route: 042
  10. CYCLOSPORIN A [Suspect]
     Active Substance: CYCLOSPORINE
     Indication: LANGERHANS^ CELL HISTIOCYTOSIS
     Dosage: 400 MG, QD
     Route: 065
  11. RADIOTHERAPY [Suspect]
     Active Substance: RADIATION THERAPY
     Indication: OSTEOLYSIS
     Route: 065
  12. DEXAMETHASONE. [Concomitant]
     Active Substance: DEXAMETHASONE
     Indication: LANGERHANS^ CELL HISTIOCYTOSIS
     Dosage: 40 MG, UNK
     Route: 065
  13. PARAPLATIN [Suspect]
     Active Substance: CARBOPLATIN
     Indication: LANGERHANS^ CELL HISTIOCYTOSIS
     Dosage: 150 MG, UNK
     Route: 041
  14. VINBLASTINE [Suspect]
     Active Substance: VINBLASTINE
     Indication: LANGERHANS^ CELL HISTIOCYTOSIS
     Dosage: FORM = INJ  4 COURSES
     Route: 042
  15. METHOTREXATE. [Suspect]
     Active Substance: METHOTREXATE
     Indication: LANGERHANS^ CELL HISTIOCYTOSIS
     Dosage: 10 MG, QWK
     Route: 065
  16. PINORUBIN [Suspect]
     Active Substance: PIRARUBICIN
     Indication: LANGERHANS^ CELL HISTIOCYTOSIS
     Dosage: 6 COURSES
     Route: 065
  17. VINDESINE [Suspect]
     Active Substance: VINDESINE
     Indication: LANGERHANS^ CELL HISTIOCYTOSIS
     Dosage: 6 COURSES
     Route: 065
  18. RADIOTHERAPY [Suspect]
     Active Substance: RADIATION THERAPY
     Indication: LUNG NEOPLASM
     Dosage: 1 DOSAGEFORM = 56 GY (TOTAL EXPOSURE)
     Route: 065
  19. VINCRISTINE SULFATE. [Suspect]
     Active Substance: VINCRISTINE SULFATE
     Indication: LANGERHANS^ CELL HISTIOCYTOSIS
     Route: 065
  20. METHYLPREDNISOLONE. [Suspect]
     Active Substance: METHYLPREDNISOLONE
     Indication: LANGERHANS^ CELL HISTIOCYTOSIS
     Dosage: 7 COURSES
     Route: 065

REACTIONS (3)
  - Neutropenia [Unknown]
  - Malignant fibrous histiocytoma [Unknown]
  - Pneumonia [Fatal]

NARRATIVE: CASE EVENT DATE: 199708
